FAERS Safety Report 6740513-0 (Version None)
Quarter: 2010Q2

REPORT INFORMATION
  Report Type: 
  Country: None (occurrence: None)
  Receive Date: 20100525
  Receipt Date: 20100513
  Transmission Date: 20101027
  Serious: Yes (Other)
  Sender: FDA-Public Use
  Company Number: BR-GENENTECH-302011

PATIENT
  Sex: Female
  Weight: 52 kg

DRUGS (15)
  1. MABTHERA [Suspect]
     Indication: RHEUMATOID ARTHRITIS
     Dosage: 1000 MG, UNK
     Route: 042
     Dates: start: 20080625, end: 20080709
  2. TOCILIZUMAB [Suspect]
     Indication: RHEUMATOID ARTHRITIS
     Dosage: 8 MG/KG, Q28D
     Route: 042
     Dates: start: 20100122
  3. CODATEN [Concomitant]
     Indication: ANALGESIC THERAPY
     Dosage: UNK
  4. ALIVIUM [Concomitant]
     Indication: ANALGESIC THERAPY
     Dosage: UNK
  5. PURAN T4 [Concomitant]
     Indication: HYPOTHYROIDISM
     Dosage: UNK
  6. VITERGAN ZINCO [Concomitant]
     Indication: DRUG USE FOR UNKNOWN INDICATION
     Dosage: UNK
  7. AMYTRIL [Concomitant]
     Indication: DEPRESSION
     Dosage: UNK
  8. DALMADORM [Concomitant]
     Indication: SLEEP DISORDER
     Dosage: UNK
  9. METHOTREXATE [Concomitant]
     Indication: RHEUMATOID ARTHRITIS
     Dosage: UNK
  10. OSCAL [Concomitant]
     Indication: MINERAL SUPPLEMENTATION
     Dosage: UNK
  11. ACTONEL [Concomitant]
     Indication: OSTEOPOROSIS
     Dosage: UNK
  12. RIVOTRIL [Concomitant]
     Indication: DRUG USE FOR UNKNOWN INDICATION
     Dosage: 5 MG, UNK
     Dates: start: 20100506
  13. KETOPROFEN [Concomitant]
     Indication: DRUG USE FOR UNKNOWN INDICATION
     Dosage: 100 MG, UNK
     Dates: start: 20100502
  14. LOSARTAN POTASSIUM [Concomitant]
     Indication: DRUG USE FOR UNKNOWN INDICATION
     Dosage: 50 MG, UNK
     Dates: start: 20090501
  15. PANTOPRAZOLE [Concomitant]
     Indication: DRUG USE FOR UNKNOWN INDICATION
     Dosage: 40 MG, UNK
     Dates: start: 20090501

REACTIONS (10)
  - DYSPNOEA [None]
  - GASTROENTERITIS [None]
  - GENERALISED OEDEMA [None]
  - HYPERSENSITIVITY [None]
  - NAUSEA [None]
  - PRURITUS [None]
  - RASH [None]
  - RENAL PAIN [None]
  - ROTATOR CUFF SYNDROME [None]
  - URINARY TRACT INFECTION [None]
